FAERS Safety Report 24030575 (Version 2)
Quarter: 2024Q3

REPORT INFORMATION
  Report Type: Spontaneous
  Country: CA (occurrence: CA)
  Receive Date: 20240628
  Receipt Date: 20240822
  Transmission Date: 20241017
  Serious: Yes (Hospitalization, Other)
  Sender: PFIZER
  Company Number: CA-PFIZER INC-202400057135

PATIENT
  Age: 63 Year
  Sex: Female
  Weight: 42.63 kg

DRUGS (3)
  1. ABRILADA [Suspect]
     Active Substance: ADALIMUMAB-AFZB
     Indication: Crohn^s disease
     Dosage: 1 DF, WEEK 0:160MG; WEEK 2:80MG THEN 40 MG EVERY OTHER WEEK.PREFILLED PEN
     Route: 058
     Dates: start: 20220720
  2. ABRILADA [Suspect]
     Active Substance: ADALIMUMAB-AFZB
     Dosage: 1 DF ( WEEK 0:160MG; WEEK 2:80MG THEN 40 MG EVERY OTHER WEEK)
     Route: 058
     Dates: start: 2024
  3. PREDNISONE [Concomitant]
     Active Substance: PREDNISONE
     Dosage: 25 MG,FREQUENCY: UNKNOWN
     Route: 065
     Dates: start: 20220516

REACTIONS (6)
  - Intestinal obstruction [Unknown]
  - Condition aggravated [Recovering/Resolving]
  - Drug ineffective [Unknown]
  - Bone pain [Not Recovered/Not Resolved]
  - Arthralgia [Recovering/Resolving]
  - Weight decreased [Unknown]

NARRATIVE: CASE EVENT DATE: 20240101
